FAERS Safety Report 4373140-3 (Version None)
Quarter: 2004Q2

REPORT INFORMATION
  Report Type: 
  Country: None (occurrence: None)
  Receive Date: 20040603
  Receipt Date: 20040519
  Transmission Date: 20050107
  Serious: Yes (Hospitalization, Other)
  Sender: FDA-Public Use
  Company Number: USA031049023

PATIENT
  Age: 9 Year
  Sex: Female
  Weight: 32 kg

DRUGS (2)
  1. STRATTERA [Suspect]
     Indication: ATTENTION DEFICIT/HYPERACTIVITY DISORDER
     Dosage: 40 MG/1 DAY
     Dates: start: 20030630, end: 20030926
  2. CONCERTA [Concomitant]

REACTIONS (11)
  - ATRIOVENTRICULAR BLOCK [None]
  - BLOOD PRESSURE DECREASED [None]
  - CARDIAC MURMUR [None]
  - COMA [None]
  - CONTUSION [None]
  - HEAD INJURY [None]
  - HEADACHE [None]
  - HEART RATE DECREASED [None]
  - PALLOR [None]
  - SOMNOLENCE [None]
  - SYNCOPE VASOVAGAL [None]
